FAERS Safety Report 4289803-4 (Version None)
Quarter: 2004Q1

REPORT INFORMATION
  Report Type: 
  Country: None (occurrence: None)
  Receive Date: 20040210
  Receipt Date: 20040203
  Transmission Date: 20041129
  Serious: Yes (Hospitalization)
  Sender: FDA-Public Use
  Company Number: FR-GLAXOSMITHKLINE-B0321905A

PATIENT
  Age: 30 Year
  Sex: Female

DRUGS (4)
  1. CLAMOXYL [Suspect]
     Dosage: 2G PER DAY
     Route: 042
     Dates: start: 20040111, end: 20040111
  2. IBUPROFEN [Suspect]
     Dosage: 3UNIT PER DAY
     Route: 048
     Dates: start: 20040111, end: 20040114
  3. DAFLON [Suspect]
     Dosage: 6UNIT PER DAY
     Route: 048
     Dates: start: 20040113, end: 20040114
  4. DAFALGAN [Suspect]
     Dosage: 6UNIT PER DAY
     Route: 048
     Dates: start: 20040111, end: 20040114

REACTIONS (3)
  - DERMATITIS BULLOUS [None]
  - PRURIGO [None]
  - RASH MACULAR [None]
